FAERS Safety Report 24797472 (Version 1)
Quarter: 2025Q1

REPORT INFORMATION
  Report Type: Spontaneous
  Country: US (occurrence: US)
  Receive Date: 20250102
  Receipt Date: 20250102
  Transmission Date: 20250408
  Serious: Yes (Life-Threatening, Hospitalization, Disabling, Other)
  Sender: CHEPLAPHARM
  Company Number: US-CHEPLA-2024016153

PATIENT
  Age: 58 Year
  Sex: Male

DRUGS (12)
  1. CAPECITABINE [Suspect]
     Active Substance: CAPECITABINE
  2. CAPECITABINE [Suspect]
     Active Substance: CAPECITABINE
  3. OXALIPLATIN [Suspect]
     Active Substance: OXALIPLATIN
     Indication: Drug hypersensitivity
     Dates: start: 201107, end: 201110
  4. OXALIPLATIN [Suspect]
     Active Substance: OXALIPLATIN
     Indication: Adenocarcinoma of colon
     Dates: start: 201107, end: 201110
  5. OXALIPLATIN [Suspect]
     Active Substance: OXALIPLATIN
     Indication: Drug hypersensitivity
  6. OXALIPLATIN [Suspect]
     Active Substance: OXALIPLATIN
     Indication: Adenocarcinoma of colon
  7. FLUOROURACIL [Suspect]
     Active Substance: FLUOROURACIL
  8. LEUCOVORIN [Suspect]
     Active Substance: LEUCOVORIN\LEUCOVORIN CALCIUM
  9. LEUCOVORIN [Suspect]
     Active Substance: LEUCOVORIN\LEUCOVORIN CALCIUM
  10. CANNABIS SATIVA FLOWERING TOP [Concomitant]
     Active Substance: CANNABIS SATIVA FLOWERING TOP
  11. BUPIVACAINE HYDROCHLORIDE [Concomitant]
     Active Substance: BUPIVACAINE HYDROCHLORIDE
  12. DEXTROSE [Concomitant]
     Active Substance: DEXTROSE MONOHYDRATE

REACTIONS (34)
  - Neuropathy peripheral [Not Recovered/Not Resolved]
  - Suicidal ideation [Unknown]
  - Large intestine perforation [Recovered/Resolved]
  - Splenic rupture [Not Recovered/Not Resolved]
  - Sepsis [Unknown]
  - Neuralgia [Unknown]
  - Dysstasia [Unknown]
  - Vomiting [Not Recovered/Not Resolved]
  - Pain in extremity [Unknown]
  - Tic [Unknown]
  - Brain fog [Unknown]
  - Speech disorder [Unknown]
  - Feeling abnormal [Unknown]
  - Road traffic accident [Unknown]
  - Back injury [Unknown]
  - Discomfort [Unknown]
  - Tooth disorder [Unknown]
  - Finger deformity [Unknown]
  - Arthropod bite [Unknown]
  - Pain [Unknown]
  - Weight decreased [Unknown]
  - Anxiety [Unknown]
  - Constipation [Unknown]
  - Tremor [Unknown]
  - Fall [Unknown]
  - Dyspnoea [Unknown]
  - Gait disturbance [Unknown]
  - Skin burning sensation [Unknown]
  - Burning sensation [Unknown]
  - Hypoaesthesia [Unknown]
  - Paraesthesia [Unknown]
  - Stomatitis [Recovered/Resolved]
  - Colon injury [Unknown]
  - Blister [Unknown]

NARRATIVE: CASE EVENT DATE: 20111001
